FAERS Safety Report 7114612-8 (Version None)
Quarter: 2010Q4

REPORT INFORMATION
  Report Type: 
  Country: None (occurrence: None)
  Receive Date: 20101121
  Receipt Date: 20101108
  Transmission Date: 20110411
  Serious: Yes (Hospitalization, Other)
  Sender: FDA-Public Use
  Company Number: DE-ELI_LILLY_AND_COMPANY-DE201011002092

PATIENT
  Sex: Female

DRUGS (7)
  1. CYMBALTA [Suspect]
     Dosage: UNK, UNKNOWN
     Route: 048
  2. METFORMIN HCL [Concomitant]
  3. KATADOLON [Concomitant]
  4. MST [Concomitant]
  5. LYRICA [Concomitant]
  6. ALPRAZOLAM [Concomitant]
  7. MIRTAZAPIN [Concomitant]

REACTIONS (7)
  - BLOOD PRESSURE SYSTOLIC DECREASED [None]
  - BRADYCARDIA [None]
  - HYPOTHERMIA [None]
  - HYPOTONIA [None]
  - INTENTIONAL OVERDOSE [None]
  - SOPOR [None]
  - SUICIDE ATTEMPT [None]
